FAERS Safety Report 4291650-4 (Version None)
Quarter: 2004Q1

REPORT INFORMATION
  Report Type: 
  Country: None (occurrence: None)
  Receive Date: 20040211
  Receipt Date: 20031124
  Transmission Date: 20041129
  Serious: No
  Sender: FDA-Public Use
  Company Number: US-GLAXOSMITHKLINE-A0441524A

PATIENT
  Age: 54 Year
  Sex: Female

DRUGS (3)
  1. IMITREX [Suspect]
     Indication: HEADACHE
     Route: 058
  2. IMITREX [Suspect]
     Route: 048
  3. IMITREX [Suspect]
     Route: 045

REACTIONS (3)
  - DRUG INEFFECTIVE [None]
  - INJECTION SITE BURNING [None]
  - INJECTION SITE PAIN [None]
